FAERS Safety Report 23386319 (Version 1)
Quarter: 2024Q1

REPORT INFORMATION
  Report Type: Spontaneous
  Country: CN (occurrence: CN)
  Receive Date: 20240110
  Receipt Date: 20240110
  Transmission Date: 20240410
  Serious: Yes (Hospitalization)
  Sender: FDA-Public Use
  Company Number: CN-HALEON-CNCH2024APC000338

PATIENT

DRUGS (2)
  1. IBUPROFEN [Suspect]
     Active Substance: IBUPROFEN
     Indication: Pyrexia
     Dosage: 1 DF, BID
     Route: 048
     Dates: start: 20231031, end: 20231102
  2. ACETAMINOPHEN [Suspect]
     Active Substance: ACETAMINOPHEN
     Indication: Pyrexia
     Dosage: 1 DF, QD
     Route: 048
     Dates: start: 20231031, end: 20231101

REACTIONS (13)
  - Dermatitis allergic [Recovering/Resolving]
  - Erythema [Recovering/Resolving]
  - Rash papular [Recovering/Resolving]
  - Pruritus [Recovering/Resolving]
  - Lip erosion [Recovering/Resolving]
  - Oropharyngeal pain [Recovering/Resolving]
  - Lip blister [Recovering/Resolving]
  - Oral mucosal blistering [Recovering/Resolving]
  - Lip ulceration [Recovering/Resolving]
  - Mouth ulceration [Recovering/Resolving]
  - Oral mucosa erosion [Recovering/Resolving]
  - Vulvar erosion [Recovering/Resolving]
  - Pigmentation disorder [Recovering/Resolving]

NARRATIVE: CASE EVENT DATE: 20231106
